FAERS Safety Report 6971513-3 (Version None)
Quarter: 2010Q3

REPORT INFORMATION
  Report Type: 
  Country: None (occurrence: None)
  Receive Date: 20100903
  Receipt Date: 20100821
  Transmission Date: 20110219
  Serious: Yes (Hospitalization, Other)
  Sender: FDA-Public Use
  Company Number: 2010AP001801

PATIENT
  Age: 54 Year
  Sex: Female

DRUGS (6)
  1. LITHIUM CARBONATE CAP [Suspect]
     Indication: AGITATION
     Dosage: 300 MG;BID;
  2. LITHIUM CARBONATE CAP [Suspect]
     Indication: BIPOLAR DISORDER
     Dosage: 300 MG;BID;
  3. RISPERIDONE [Suspect]
  4. HALOPERIDOL [Suspect]
     Indication: AGITATION
     Dosage: 5 MG;QH;IM
  5. BENZATROPINE [Concomitant]
  6. LORAZEPAM [Concomitant]

REACTIONS (8)
  - DELIRIUM [None]
  - DRUG INEFFECTIVE [None]
  - FEAR [None]
  - HEART RATE INCREASED [None]
  - NEUROLEPTIC MALIGNANT SYNDROME [None]
  - PSYCHOTIC DISORDER [None]
  - RESPIRATORY RATE DECREASED [None]
  - SALIVARY HYPERSECRETION [None]
